FAERS Safety Report 8855681 (Version 1)
Quarter: 2012Q4

REPORT INFORMATION
  Report Type: Spontaneous
  Country: US (occurrence: None)
  Receive Date: 20121019
  Receipt Date: 20121019
  Transmission Date: 20130627
  Serious: Yes (Other)
  Sender: FDA-Public Use
  Company Number: None

PATIENT
  Sex: Female
  Weight: 90.27 kg

DRUGS (1)
  1. MODAFINIL [Suspect]
     Indication: NARCOLEPSY
     Dosage: 400mg daily oral
     Route: 048
     Dates: start: 201205

REACTIONS (2)
  - Drug ineffective [None]
  - Somnolence [None]
